FAERS Safety Report 18234069 (Version 1)
Quarter: 2020Q3

REPORT INFORMATION
  Report Type: Spontaneous
  Country: US (occurrence: US)
  Receive Date: 20200904
  Receipt Date: 20200904
  Transmission Date: 20201103
  Serious: Yes (Hospitalization)
  Sender: FDA-Public Use
  Company Number: US-HIKMA PHARMACEUTICALS USA INC.-US-H14001-20-04065

PATIENT
  Age: 13 Year
  Sex: Male

DRUGS (17)
  1. EPIDIOLEX [Interacting]
     Active Substance: CANNABIDIOL
     Route: 065
  2. LITHIUM. [Suspect]
     Active Substance: LITHIUM
     Indication: AGGRESSION
     Dosage: EVERY MORNING
     Route: 065
  3. BUPROPION. [Concomitant]
     Active Substance: BUPROPION
     Indication: PRODUCT USED FOR UNKNOWN INDICATION
     Dosage: UNKNOWN
     Route: 065
  4. AMANTADINE. [Concomitant]
     Active Substance: AMANTADINE HYDROCHLORIDE
     Dosage: UNKNOWN
     Route: 065
  5. CLOBAZAM. [Interacting]
     Active Substance: CLOBAZAM
     Route: 065
  6. PREGABALIN. [Concomitant]
     Active Substance: PREGABALIN
     Indication: PRODUCT USED FOR UNKNOWN INDICATION
     Dosage: UNKNOWN
     Route: 065
  7. QUETIAPINE. [Concomitant]
     Active Substance: QUETIAPINE
     Indication: PRODUCT USED FOR UNKNOWN INDICATION
     Route: 065
  8. CLONIDINE. [Concomitant]
     Active Substance: CLONIDINE
     Indication: PRODUCT USED FOR UNKNOWN INDICATION
     Dosage: UNKNOWN
     Route: 065
  9. CLOBAZAM. [Interacting]
     Active Substance: CLOBAZAM
     Indication: SEIZURE
     Route: 065
  10. CLOBAZAM. [Interacting]
     Active Substance: CLOBAZAM
     Route: 065
  11. PERPHENAZINE. [Concomitant]
     Active Substance: PERPHENAZINE
     Indication: PRODUCT USED FOR UNKNOWN INDICATION
     Route: 065
  12. LITHIUM. [Interacting]
     Active Substance: LITHIUM
     Route: 065
  13. LITHIUM. [Interacting]
     Active Substance: LITHIUM
     Dosage: EVERY EVENING
     Route: 065
  14. EPIDIOLEX [Interacting]
     Active Substance: CANNABIDIOL
     Indication: SEIZURE
     Route: 065
  15. FELBAMATE. [Concomitant]
     Active Substance: FELBAMATE
     Indication: SEIZURE
     Route: 065
  16. QUETIAPINE. [Concomitant]
     Active Substance: QUETIAPINE
     Route: 065
  17. TRAZODONE [Concomitant]
     Active Substance: TRAZODONE HYDROCHLORIDE
     Indication: PRODUCT USED FOR UNKNOWN INDICATION
     Route: 065

REACTIONS (5)
  - Drug interaction [Unknown]
  - Hypersomnia [Unknown]
  - Ataxia [Unknown]
  - Hypophagia [Unknown]
  - Toxicity to various agents [Recovered/Resolved]
